FAERS Safety Report 8534294-8 (Version None)
Quarter: 2012Q2

REPORT INFORMATION
  Report Type: 
  Country: None (occurrence: None)
  Receive Date: 20120627
  Receipt Date: 20120611
  Transmission Date: 20120825
  Serious: Yes (Death, Hospitalization)
  Sender: FDA-Public Use
  Company Number: 2012PROUSA01503

PATIENT
  Age: 82 Year
  Sex: Male
  Weight: 72.1 kg

DRUGS (8)
  1. PROVENGE [Suspect]
  2. ADVAIR HFA [Concomitant]
  3. DETROL LA (TOLTERODINE I-TARTRATE) [Concomitant]
  4. FLOMAX [Concomitant]
  5. SPIRIVA [Concomitant]
  6. PROVENGE [Suspect]
     Indication: PROSTATE CANCER METASTATIC
     Dosage: 250 ML, SINGLE, INTRAVENOUS
     Route: 042
     Dates: start: 20120518, end: 20120518
  7. PROVENGE [Suspect]
     Indication: PROSTATE CANCER METASTATIC
     Dosage: 250 ML, SINGLE, INTRAVENOUS
     Route: 042
     Dates: start: 20120601, end: 20120601
  8. CITALOPRAM HYDROBROMIDE [Concomitant]

REACTIONS (11)
  - DEVICE RELATED SEPSIS [None]
  - DEHYDRATION [None]
  - LOBAR PNEUMONIA [None]
  - DYSPNOEA EXERTIONAL [None]
  - HYPOTENSION [None]
  - MYCOBACTERIUM ABSCESSUS INFECTION [None]
  - DYSPNOEA [None]
  - NIGHT SWEATS [None]
  - CHRONIC OBSTRUCTIVE PULMONARY DISEASE [None]
  - ACUTE MYOCARDIAL INFARCTION [None]
  - CHEST DISCOMFORT [None]
